FAERS Safety Report 23835011 (Version 3)
Quarter: 2024Q2

REPORT INFORMATION
  Report Type: Report from Study
  Country: US (occurrence: US)
  Receive Date: 20240509
  Receipt Date: 20240628
  Transmission Date: 20240716
  Serious: Yes (Hospitalization, Other)
  Sender: FDA-Public Use
  Company Number: US-ABBVIE-5747523

PATIENT
  Sex: Male

DRUGS (2)
  1. HUMIRA [Suspect]
     Active Substance: ADALIMUMAB
     Indication: Rheumatoid arthritis
     Route: 058
     Dates: start: 20230510, end: 20240310
  2. HUMIRA [Suspect]
     Active Substance: ADALIMUMAB
     Dosage: STOP DATE: 2023
     Route: 058
     Dates: start: 20230406

REACTIONS (11)
  - Fluid retention [Unknown]
  - Hospitalisation [Unknown]
  - Dialysis [Not Recovered/Not Resolved]
  - Blood pressure abnormal [Unknown]
  - Dysuria [Unknown]
  - Weight increased [Recovering/Resolving]
  - Arthralgia [Not Recovered/Not Resolved]
  - Escherichia pyelonephritis [Unknown]
  - Nephritis bacterial [Unknown]
  - Cystitis bacterial [Unknown]
  - Cystitis escherichia [Unknown]

NARRATIVE: CASE EVENT DATE: 20240101
